FAERS Safety Report 7994689-8 (Version None)
Quarter: 2011Q4

REPORT INFORMATION
  Report Type: 
  Country: None (occurrence: None)
  Receive Date: 20111220
  Receipt Date: 20111208
  Transmission Date: 20120403
  Serious: Yes (Hospitalization)
  Sender: FDA-Public Use
  Company Number: DE-AMGEN-DEUSP2011065569

PATIENT
  Age: 80 Year
  Sex: Male
  Weight: 63 kg

DRUGS (3)
  1. XGEVA [Suspect]
     Indication: METASTASES TO BONE
     Dosage: 120 MG, Q4WK
     Route: 058
     Dates: start: 20111012, end: 20111108
  2. PAMORELIN LA [Concomitant]
     Dosage: UNK UNK, Q3MO
  3. DEKRISTOL [Concomitant]
     Indication: PROSTATE CANCER
     Dosage: 1125 MG, Q3MO
     Route: 030

REACTIONS (1)
  - ANAEMIA [None]
